FAERS Safety Report 7166933-0 (Version None)
Quarter: 2010Q4

REPORT INFORMATION
  Report Type: 
  Country: None (occurrence: None)
  Receive Date: 20101216
  Receipt Date: 20101208
  Transmission Date: 20110411
  Serious: Yes (Hospitalization)
  Sender: FDA-Public Use
  Company Number: FR-ASTRAZENECA-2010SE58490

PATIENT
  Age: 72 Year
  Sex: Male

DRUGS (7)
  1. ZOLADEX [Suspect]
     Route: 058
     Dates: start: 20080901, end: 20100401
  2. ALDACTONE [Concomitant]
  3. JANUVIA [Concomitant]
  4. NEBIVOLOL HCL [Concomitant]
  5. RASILEZ [Concomitant]
  6. KEPPRA [Concomitant]
  7. TEGRETOL [Concomitant]

REACTIONS (3)
  - HYPERGLYCAEMIA [None]
  - MYOPATHY [None]
  - WEIGHT INCREASED [None]
